FAERS Safety Report 6275066-7 (Version None)
Quarter: 2009Q3

REPORT INFORMATION
  Report Type: 
  Country: None (occurrence: None)
  Receive Date: 20090721
  Receipt Date: 20090707
  Transmission Date: 20100115
  Serious: Yes (Other)
  Sender: FDA-Public Use
  Company Number: JP-ROCHE-623728

PATIENT
  Sex: Female

DRUGS (7)
  1. RIBAVIRIN [Suspect]
     Indication: HEPATITIS C
     Route: 048
     Dates: start: 20080621, end: 20080717
  2. RIBAVIRIN [Suspect]
     Dosage: DOSE DECREASED.
     Route: 048
     Dates: start: 20080718, end: 20081220
  3. RIBAVIRIN [Suspect]
     Route: 048
     Dates: start: 20081226, end: 20090410
  4. PEG-INTERFERON ALFA 2A (RO 25-8310) [Suspect]
     Indication: HEPATITIS C
     Route: 058
     Dates: start: 20080621, end: 20090410
  5. CRESTOR [Concomitant]
     Route: 048
  6. BLOPRESS [Concomitant]
     Route: 048
  7. AMLODIPINE [Concomitant]
     Dosage: DRUG NAME REPORTED AS:^AMLODIN OD^.
     Route: 048

REACTIONS (2)
  - ARTHRALGIA [None]
  - HAEMOGLOBIN DECREASED [None]
